FAERS Safety Report 14208414 (Version 1)
Quarter: 2017Q4

REPORT INFORMATION
  Report Type: Spontaneous
  Country: JP (occurrence: JP)
  Receive Date: 20171121
  Receipt Date: 20171121
  Transmission Date: 20180321
  Serious: Yes (Hospitalization)
  Sender: FDA-Public Use
  Company Number: JP-ELI_LILLY_AND_COMPANY-JP201710000119

PATIENT
  Age: 78 Year
  Sex: Female
  Weight: 33 kg

DRUGS (2)
  1. BAYASPIRIN [Concomitant]
     Active Substance: ASPIRIN
     Dosage: 100 MG, DAILY
     Route: 048
  2. FORTEO [Suspect]
     Active Substance: TERIPARATIDE
     Indication: OSTEOPOROSIS
     Route: 058

REACTIONS (1)
  - Arterial injury [Recovering/Resolving]

NARRATIVE: CASE EVENT DATE: 20170927
